FAERS Safety Report 4858476-1 (Version None)
Quarter: 2005Q4

REPORT INFORMATION
  Report Type: 
  Country: None (occurrence: None)
  Receive Date: 20051219
  Receipt Date: 20050812
  Transmission Date: 20060501
  Serious: No
  Sender: FDA-Public Use
  Company Number: US-GLAXOSMITHKLINE-A0570038A

PATIENT
  Age: 79 Year
  Sex: Female

DRUGS (2)
  1. AMERICAN FARE NTS, 21MG STEP 1 [Suspect]
     Dates: start: 20050811
  2. KLONOPIN [Concomitant]

REACTIONS (1)
  - INSOMNIA [None]
